FAERS Safety Report 8980859 (Version 1)
Quarter: 2012Q4

REPORT INFORMATION
  Report Type: 
  Country: US (occurrence: US)
  Receive Date: 20121221
  Receipt Date: 20121221
  Transmission Date: 20130627
  Serious: No
  Sender: FDA-Public Use
  Company Number: US-PFIZER INC-2012323647

PATIENT
  Sex: Female

DRUGS (2)
  1. ADVIL [Suspect]
     Indication: COLD
     Dosage: Unk, two tablets in the morning and the other two at bed time
  2. ADVIL [Suspect]
     Indication: ARTHRITIS
     Dosage: UNK

REACTIONS (2)
  - Off label use [Unknown]
  - Abdominal discomfort [Unknown]
